FAERS Safety Report 16460719 (Version 1)
Quarter: 2019Q2

REPORT INFORMATION
  Report Type: Report from Study
  Country: US (occurrence: US)
  Receive Date: 20190620
  Receipt Date: 20190620
  Transmission Date: 20190711
  Serious: Yes (Other)
  Sender: FDA-Public Use
  Company Number: US-GILEAD-2019-0414321

PATIENT
  Age: 28 Year
  Sex: Female
  Weight: 60.77 kg

DRUGS (2)
  1. AMBRISENTAN [Suspect]
     Active Substance: AMBRISENTAN
     Indication: PULMONARY HYPERTENSION
     Dosage: 5 MG, QD
     Route: 048
     Dates: start: 20190501
  2. OXYGEN. [Concomitant]
     Active Substance: OXYGEN

REACTIONS (7)
  - Weight increased [Unknown]
  - Nasal congestion [Not Recovered/Not Resolved]
  - Flushing [Not Recovered/Not Resolved]
  - Nasal oedema [Not Recovered/Not Resolved]
  - Anaemia [Unknown]
  - Syncope [Unknown]
  - Hot flush [Not Recovered/Not Resolved]
